FAERS Safety Report 19063528 (Version 11)
Quarter: 2022Q1

REPORT INFORMATION
  Report Type: Report from Study
  Country: CN (occurrence: None)
  Receive Date: 20210326
  Receipt Date: 20220302
  Transmission Date: 20220424
  Serious: Yes (Hospitalization)
  Sender: FDA-Public Use
  Company Number: CN-ROCHE-2794639

PATIENT
  Age: 44 Year
  Sex: Male
  Weight: 78 kg

DRUGS (27)
  1. POLATUZUMAB VEDOTIN [Suspect]
     Active Substance: POLATUZUMAB VEDOTIN
     Indication: Diffuse large B-cell lymphoma
     Dosage: START DATE OF MOST RECENT DOSE (144.9) PRIOR TO AE WAS 05/JAN/2021?START DATE OF MOST RECENT DOSE (1
     Route: 042
     Dates: start: 20201217
  2. RITUXIMAB [Suspect]
     Active Substance: RITUXIMAB
     Indication: Diffuse large B-cell lymphoma
     Dosage: START DATE OF MOST RECENT DOSE (742.5 MG) PRIOR TO AE WAS 05/JAN/2021?START DATE OF MOST RECENT DOSE
     Route: 041
     Dates: start: 20201216
  3. BENDAMUSTINE [Suspect]
     Active Substance: BENDAMUSTINE
     Indication: Diffuse large B-cell lymphoma
     Dosage: START DATE OF MOST RECENT DOSE (178.2 MG) PRIOR TO AE WAS 05/JAN/2021?START DATE OF MOST RECENT DOSE
     Route: 042
     Dates: start: 20201217
  4. ACYCLOVIR [Concomitant]
     Active Substance: ACYCLOVIR
     Dates: start: 20201216
  5. SULFAMETHOXAZOLE [Concomitant]
     Active Substance: SULFAMETHOXAZOLE
     Dates: start: 20201216
  6. PREDNISONE ACETATE [Concomitant]
     Active Substance: PREDNISONE ACETATE
     Route: 047
     Dates: start: 20210105, end: 20210105
  7. PREDNISONE ACETATE [Concomitant]
     Active Substance: PREDNISONE ACETATE
     Route: 047
     Dates: start: 20210207, end: 20210207
  8. PREDNISONE ACETATE [Concomitant]
     Active Substance: PREDNISONE ACETATE
     Route: 047
     Dates: start: 20210302, end: 20210302
  9. DIPHENHYDRAMINE [Concomitant]
     Active Substance: DIPHENHYDRAMINE
     Dates: start: 20210105, end: 20210105
  10. DIPHENHYDRAMINE [Concomitant]
     Active Substance: DIPHENHYDRAMINE
     Dates: start: 20210207, end: 20210207
  11. DIPHENHYDRAMINE [Concomitant]
     Active Substance: DIPHENHYDRAMINE
     Dates: start: 20210302, end: 20210302
  12. ACETAMINOPHEN [Concomitant]
     Active Substance: ACETAMINOPHEN
     Dates: start: 20210105, end: 20210105
  13. ACETAMINOPHEN [Concomitant]
     Active Substance: ACETAMINOPHEN
     Dates: start: 20210207, end: 20210207
  14. ACETAMINOPHEN [Concomitant]
     Active Substance: ACETAMINOPHEN
     Dates: start: 20210302, end: 20210302
  15. DIISOPROPYLAMINE DICHLOROACETATE [Concomitant]
     Dates: start: 20210104, end: 20210108
  16. DIISOPROPYLAMINE DICHLOROACETATE [Concomitant]
     Dates: start: 20210301, end: 20210304
  17. COMPOUND AMMONIUM GLYCYRRHETATE [Concomitant]
     Dates: start: 20210105, end: 20210108
  18. BICYCLOL [Concomitant]
     Active Substance: BICYCLOL
     Dates: start: 20210104, end: 20210108
  19. SPLEEN POLYPEPTIDE [Concomitant]
     Dates: start: 20210105, end: 20210108
  20. IBUPROFEN [Concomitant]
     Active Substance: IBUPROFEN
     Dates: start: 20210105, end: 20210105
  21. PANTOPRAZOLE SODIUM [Concomitant]
     Active Substance: PANTOPRAZOLE SODIUM
     Dates: start: 20210207, end: 20210209
  22. PANTOPRAZOLE SODIUM [Concomitant]
     Active Substance: PANTOPRAZOLE SODIUM
     Dates: start: 20210105, end: 20210209
  23. PANTOPRAZOLE SODIUM [Concomitant]
     Active Substance: PANTOPRAZOLE SODIUM
     Dates: start: 20210301, end: 20210304
  24. ROXATIDINE ACETATE HYDROCHLORIDE [Concomitant]
     Active Substance: ROXATIDINE ACETATE HYDROCHLORIDE
     Dates: start: 20210207, end: 20210209
  25. LANSOPRAZOLE [Concomitant]
     Active Substance: LANSOPRAZOLE
     Dates: start: 20210319, end: 20210326
  26. NIFEDIPINE [Concomitant]
     Active Substance: NIFEDIPINE
     Dates: start: 20201130
  27. GRANULOCYTE COLONY-STIMULATING FACTOR NOS [Concomitant]
     Active Substance: GRANULOCYTE COLONY-STIMULATING FACTOR NOS
     Dates: start: 20210326, end: 20210326

REACTIONS (1)
  - Myelosuppression [Recovered/Resolved]

NARRATIVE: CASE EVENT DATE: 20210319
